FAERS Safety Report 13440677 (Version 1)
Quarter: 2017Q2

REPORT INFORMATION
  Report Type: Spontaneous
  Country: US (occurrence: US)
  Receive Date: 20170413
  Receipt Date: 20170413
  Transmission Date: 20170830
  Serious: No
  Sender: FDA-Public Use
  Company Number: US-ASTELLAS-2017US006688

PATIENT
  Age: 59 Year
  Sex: Female

DRUGS (1)
  1. PROGRAF [Suspect]
     Active Substance: TACROLIMUS\TACROLIMUS ANHYDROUS
     Indication: LIVER TRANSPLANT
     Dosage: 2 MG IN AM AND 1 MG IN PM, TWICE DAILY
     Route: 048
     Dates: start: 19990304

REACTIONS (1)
  - Abdominal pain upper [Unknown]

NARRATIVE: CASE EVENT DATE: 20170201
